FAERS Safety Report 19979921 (Version 1)
Quarter: 2021Q4

REPORT INFORMATION
  Report Type: Report from Study
  Country: SE (occurrence: SE)
  Receive Date: 20211021
  Receipt Date: 20211021
  Transmission Date: 20220303
  Serious: Yes (Death)
  Sender: FDA-Public Use
  Company Number: SE-ROCHE-2940049

PATIENT
  Age: 78 Year
  Sex: Male
  Weight: 84.8 kg

DRUGS (8)
  1. OBINUTUZUMAB [Suspect]
     Active Substance: OBINUTUZUMAB
     Indication: Chronic lymphocytic leukaemia
     Dosage: DATE OF LAST DOSE: 11/NOV/20219
     Route: 042
     Dates: start: 20191014, end: 20191126
  2. VENETOCLAX [Suspect]
     Active Substance: VENETOCLAX
     Indication: Chronic lymphocytic leukaemia
     Dosage: DATE OF LAST DOSE: 25/NOV/20219
     Route: 065
     Dates: start: 20191104, end: 20191126
  3. ACETAMINOPHEN [Concomitant]
     Active Substance: ACETAMINOPHEN
     Route: 048
     Dates: start: 20210705, end: 20211001
  4. MIDAZOLAM [Concomitant]
     Active Substance: MIDAZOLAM
     Dosage: 5 MG/ML
  5. ROBINUL [Concomitant]
     Active Substance: GLYCOPYRROLATE
     Dosage: 0.2 MG/ML
     Route: 042
     Dates: start: 20211001, end: 20211005
  6. MORFIN [Concomitant]
     Dosage: 10 MG/ML
  7. HALDOL [Concomitant]
     Active Substance: HALOPERIDOL
     Dosage: 5 MG/ML
  8. PRIVIGEN [Concomitant]
     Active Substance: HUMAN IMMUNOGLOBULIN G
     Route: 042
     Dates: start: 20210930, end: 20210930

REACTIONS (1)
  - Febrile neutropenia [Fatal]

NARRATIVE: CASE EVENT DATE: 20210928
